FAERS Safety Report 13835561 (Version 2)
Quarter: 2017Q3

REPORT INFORMATION
  Report Type: Spontaneous
  Country: CZ (occurrence: CZ)
  Receive Date: 20170804
  Receipt Date: 20170928
  Transmission Date: 20171127
  Serious: Yes (Other)
  Sender: FDA-Public Use
  Company Number: CZ-TEVA-792441ROM

PATIENT
  Age: 77 Year
  Sex: Male

DRUGS (13)
  1. CHLOROQUINE. [Concomitant]
     Active Substance: CHLOROQUINE
     Route: 048
  2. NITRENDIPINE [Concomitant]
     Active Substance: NITRENDIPINE
     Route: 048
  3. OMEPRAZOLE. [Concomitant]
     Active Substance: OMEPRAZOLE
     Route: 048
  4. KOTRIMOXAZOLE [Concomitant]
     Route: 048
  5. ALLOPURINOL. [Suspect]
     Active Substance: ALLOPURINOL
     Route: 048
  6. CALCITRIOL. [Concomitant]
     Active Substance: CALCITRIOL
     Route: 048
  7. BISOPROLOL [Concomitant]
     Active Substance: BISOPROLOL
     Route: 048
  8. MOXONIDINE [Concomitant]
     Active Substance: MOXONIDINE
     Route: 048
  9. PREDNISOLONE. [Concomitant]
     Active Substance: PREDNISOLONE
     Indication: ANTINEUTROPHIL CYTOPLASMIC ANTIBODY
     Dosage: 15 MILLIGRAM DAILY;
     Route: 048
     Dates: start: 201409
  10. AZATHIOPRINE. [Suspect]
     Active Substance: AZATHIOPRINE
     Indication: ANTINEUTROPHIL CYTOPLASMIC ANTIBODY
     Dosage: 150 MILLIGRAM DAILY;
     Route: 048
     Dates: start: 201504
  11. FUROSEMIDE. [Concomitant]
     Active Substance: FUROSEMIDE
     Route: 048
  12. THEOPHYLLINE [Concomitant]
     Active Substance: THEOPHYLLINE ANHYDROUS
     Route: 048
  13. TAMSULOSIN [Concomitant]
     Active Substance: TAMSULOSIN
     Route: 048

REACTIONS (2)
  - Sepsis [Recovered/Resolved with Sequelae]
  - Bone marrow failure [Recovered/Resolved with Sequelae]

NARRATIVE: CASE EVENT DATE: 201606
